FAERS Safety Report 5412356-1 (Version None)
Quarter: 2007Q3

REPORT INFORMATION
  Report Type: 
  Country: None (occurrence: None)
  Receive Date: 20070809
  Receipt Date: 20070803
  Transmission Date: 20080115
  Serious: Yes (Death)
  Sender: FDA-Public Use
  Company Number: 234866K07USA

PATIENT
  Age: 33 Year
  Sex: Male

DRUGS (4)
  1. REBIF [Suspect]
     Indication: MULTIPLE SCLEROSIS
     Dosage: 44 MCG, 3 IN 1 WEEKS, SUBCUTANEOUS
     Route: 058
     Dates: start: 20070101
  2. HYDROXYCUT(ALL OTHER THERAPEUTIC PRODUCTS) [Suspect]
  3. PSYCHIATRIC MEDICATIONS (ALL OTHER THERAPEUTIC PRODUCTS) [Suspect]
     Dates: start: 20070201
  4. MULTIPLE MEDICATIONS (ALL OTHER THERAPEUTIC PRODUCTS) [Concomitant]

REACTIONS (2)
  - BIPOLAR DISORDER [None]
  - PNEUMONIA [None]
